FAERS Safety Report 22053990 (Version 1)
Quarter: 2023Q1

REPORT INFORMATION
  Report Type: Report from Study
  Country: US (occurrence: US)
  Receive Date: 20230302
  Receipt Date: 20230302
  Transmission Date: 20230418
  Serious: Yes (Hospitalization)
  Sender: FDA-Public Use
  Company Number: US-UPSHER-SMITH LABORATORIES, LLC-2023USL00159

PATIENT
  Sex: Female

DRUGS (4)
  1. VIGADRONE [Suspect]
     Active Substance: VIGABATRIN
     Dosage: UNK
     Dates: start: 20230104, end: 2023
  2. VIGADRONE [Suspect]
     Active Substance: VIGABATRIN
     Dosage: HIGH DOSE
     Dates: start: 2023, end: 2023
  3. VIGADRONE [Suspect]
     Active Substance: VIGABATRIN
     Dosage: WEAN DOSE
     Dates: start: 2023, end: 2023
  4. VIGADRONE [Suspect]
     Active Substance: VIGABATRIN
     Dosage: 5 ML
     Dates: start: 2023, end: 2023

REACTIONS (4)
  - Depressed level of consciousness [Recovered/Resolved]
  - Unresponsive to stimuli [Recovered/Resolved]
  - Sudden onset of sleep [Recovered/Resolved]
  - Toxicity to various agents [Recovered/Resolved]

NARRATIVE: CASE EVENT DATE: 20230101
